FAERS Safety Report 7909562-0 (Version None)
Quarter: 2011Q4

REPORT INFORMATION
  Report Type: 
  Country: None (occurrence: None)
  Receive Date: 20111111
  Receipt Date: 20111103
  Transmission Date: 20120403
  Serious: Yes (Hospitalization)
  Sender: FDA-Public Use
  Company Number: PHHY2011FR097732

PATIENT
  Age: 34 Year
  Sex: Female

DRUGS (1)
  1. AMOXICILLIN [Suspect]
     Indication: DENTAL OPERATION
     Dosage: 1000 MG, BID
     Dates: start: 20070220

REACTIONS (8)
  - BILIARY CIRRHOSIS PRIMARY [None]
  - PRURITUS GENERALISED [None]
  - CHOLANGITIS [None]
  - ASTHENIA [None]
  - LYMPHOCYTIC INFILTRATION [None]
  - MALAISE [None]
  - HEPATITIS CHOLESTATIC [None]
  - JAUNDICE [None]
